FAERS Safety Report 8595346-X (Version None)
Quarter: 2012Q3

REPORT INFORMATION
  Report Type: 
  Country: None (occurrence: None)
  Receive Date: 20120807
  Receipt Date: 20120807
  Transmission Date: 20120928
  Serious: Yes (Hospitalization)
  Sender: FDA-Public Use
  Company Number: None

PATIENT
  Sex: Female
  Weight: 124.2 kg

DRUGS (7)
  1. OXALIPLATIN (ELOXATIN) 114 MG [Suspect]
  2. LEUCOVORIN CALCIUM [Suspect]
  3. TOPROL-XL [Concomitant]
  4. NAPROSYN [Concomitant]
  5. HYDROCHLOROTHIAZIDE [Concomitant]
  6. NEXIUM [Concomitant]
  7. FLUOROURACIL [Suspect]

REACTIONS (2)
  - INTERNATIONAL NORMALISED RATIO DECREASED [None]
  - DEEP VEIN THROMBOSIS [None]
